FAERS Safety Report 15578364 (Version 1)
Quarter: 2018Q4

REPORT INFORMATION
  Report Type: Report from Study
  Country: AT (occurrence: AT)
  Receive Date: 20181102
  Receipt Date: 20181102
  Transmission Date: 20190205
  Serious: Yes (Hospitalization)
  Sender: FDA-Public Use
  Company Number: AT-ROCHE-2198785

PATIENT
  Age: 52 Year
  Sex: Female
  Weight: 53 kg

DRUGS (20)
  1. LOVENOX [Concomitant]
     Active Substance: ENOXAPARIN SODIUM
     Dosage: ONGOING = CHECKED
     Route: 065
     Dates: start: 20180715
  2. FENISTIL (AUSTRIA) [Concomitant]
     Dosage: ONGOING = CHECKED
     Route: 065
     Dates: start: 20180628
  3. MOLAXOLE [Concomitant]
     Active Substance: POLYETHYLENE GLYCOL 3350\POTASSIUM CHLORIDE\SODIUM BICARBONATE\SODIUM CHLORIDE
     Dosage: ONGOING = CHECKED
     Route: 065
  4. ENALAPRIL [Concomitant]
     Active Substance: ENALAPRIL
     Indication: LEFT VENTRICULAR DYSFUNCTION
     Route: 065
     Dates: start: 20180809
  5. PERTUZUMAB. [Suspect]
     Active Substance: PERTUZUMAB
     Indication: BREAST CANCER
     Dosage: MOST RECENT DOSE PRIOR TO THE EVENT: 19/JUL/2018
     Route: 042
     Dates: start: 20180628, end: 20180628
  6. EMEND [Concomitant]
     Active Substance: APREPITANT
     Dosage: ONGOING = CHECKED
     Route: 065
     Dates: start: 20180809
  7. XANOR [Concomitant]
     Active Substance: ALPRAZOLAM
     Dosage: ONGOING = NOT CHECKED
     Route: 065
     Dates: start: 20180615, end: 20181015
  8. DOCETAXEL. [Suspect]
     Active Substance: DOCETAXEL
     Indication: BREAST CANCER
     Dosage: MOST RECENT DOSE PRIOR TO THE EVENT: 19/JUL/2018
     Route: 042
     Dates: start: 20180628, end: 20180628
  9. SPIRONO [Concomitant]
     Dosage: ONGOING = CHECKED
     Route: 065
     Dates: start: 20180830
  10. DEXAMETHASON [Concomitant]
     Active Substance: DEXAMETHASONE
     Dosage: ONGOING = CHECKED
     Route: 065
     Dates: start: 20180628
  11. ZOFRAN [Concomitant]
     Active Substance: ONDANSETRON HYDROCHLORIDE
     Dosage: ONGOING = CHECKED
     Route: 065
     Dates: start: 20180628
  12. HALCION [Concomitant]
     Active Substance: TRIAZOLAM
     Dosage: ONGOING = CHECKED
     Route: 065
     Dates: start: 20181018
  13. NOVALGIN (AUSTRIA) [Concomitant]
     Dosage: ONGOING = CHECKED
     Route: 065
     Dates: start: 20180615
  14. TRASTUZUMAB. [Suspect]
     Active Substance: TRASTUZUMAB
     Indication: BREAST CANCER
     Dosage: MOST RECENT DOSE PRIOR TO THE EVENT: 19/JUL/2018.
     Route: 042
     Dates: start: 20180628, end: 20180628
  15. DEXAMETHASON [Concomitant]
     Active Substance: DEXAMETHASONE
     Dosage: ONGOING = CHECKED
     Route: 065
     Dates: start: 20180628
  16. NEULASTA [Concomitant]
     Active Substance: PEGFILGRASTIM
     Dosage: ONGOING = CHECKED
     Route: 065
     Dates: start: 20180720
  17. ZOFRAN [Concomitant]
     Active Substance: ONDANSETRON HYDROCHLORIDE
     Dosage: ONGOING = CHECKED
     Route: 065
     Dates: start: 20180715
  18. BIOFLORIN (AUSTRIA) [Concomitant]
     Dosage: ONGOING = NOT CHECKED
     Route: 065
     Dates: start: 20181011, end: 20181020
  19. PANTOPRAZOL [Concomitant]
     Active Substance: PANTOPRAZOLE SODIUM
     Dosage: ONGOING = CHECKED
     Route: 065
     Dates: start: 20180715
  20. BISOPROLOL [Concomitant]
     Active Substance: BISOPROLOL
     Indication: LEFT VENTRICULAR DYSFUNCTION
     Route: 065
     Dates: start: 20180809

REACTIONS (2)
  - C-reactive protein increased [Recovered/Resolved]
  - Diarrhoea [Recovered/Resolved]

NARRATIVE: CASE EVENT DATE: 20181010
